FAERS Safety Report 9443918 (Version 1)
Quarter: 2013Q3

REPORT INFORMATION
  Report Type: Spontaneous
  Country: US (occurrence: US)
  Receive Date: 20130807
  Receipt Date: 20130807
  Transmission Date: 20140515
  Serious: Yes (Hospitalization, Other)
  Sender: FDA-Public Use
  Company Number: US-AMGEN-USASP2013053891

PATIENT
  Age: 67 Year
  Sex: Female

DRUGS (1)
  1. EPOGEN [Suspect]
     Indication: RENAL FAILURE CHRONIC
     Dosage: 8000 UNIT, 3 TIMES/WK
     Route: 065
     Dates: start: 20130326

REACTIONS (11)
  - Gastrointestinal haemorrhage [Unknown]
  - Haemoglobin decreased [Unknown]
  - Carotid artery stenosis [Unknown]
  - Lung neoplasm malignant [Unknown]
  - Chronic obstructive pulmonary disease [Unknown]
  - Cerebrovascular accident [Unknown]
  - Hypertension [Unknown]
  - Drug effect incomplete [Unknown]
  - Hypercholesterolaemia [Unknown]
  - Rhinitis allergic [Unknown]
  - Pneumonia [Unknown]
